FAERS Safety Report 21380445 (Version 1)
Quarter: 2022Q3

REPORT INFORMATION
  Report Type: Spontaneous
  Country: FR (occurrence: FR)
  Receive Date: 20220927
  Receipt Date: 20220927
  Transmission Date: 20221027
  Serious: Yes (Other)
  Sender: FDA-Public Use
  Company Number: None

PATIENT
  Age: 60 Year
  Sex: Female

DRUGS (2)
  1. RIVASTIGMINE [Suspect]
     Active Substance: RIVASTIGMINE
     Indication: Behaviour disorder
     Dosage: 4.6MG/D IN MAY,22 THEN INCREASE TO 9MG/D IN JUN,22
     Route: 003
     Dates: start: 202205
  2. RIVASTIGMINE [Suspect]
     Active Substance: RIVASTIGMINE
     Dosage: 4.6MG/D IN MAY,22 THEN INCREASE TO 9MG/D IN JUN,22
     Route: 003
     Dates: start: 202206

REACTIONS (1)
  - Catatonia [Not Recovered/Not Resolved]

NARRATIVE: CASE EVENT DATE: 20220701
